FAERS Safety Report 8212318-5 (Version None)
Quarter: 2012Q1

REPORT INFORMATION
  Report Type: 
  Country: None (occurrence: None)
  Receive Date: 20120315
  Receipt Date: 20120308
  Transmission Date: 20120608
  Serious: Yes (Other)
  Sender: FDA-Public Use
  Company Number: US-BAYER-2012-012147

PATIENT
  Age: 63 Year
  Sex: Female
  Weight: 53.5 kg

DRUGS (3)
  1. NEXAVAR [Suspect]
     Indication: HEPATIC NEOPLASM MALIGNANT
     Dosage: 400 MG, BID
     Route: 048
     Dates: start: 20120203, end: 20120215
  2. NEXAVAR [Suspect]
     Dosage: 200 MG, QD
  3. NEXAVAR [Suspect]
     Dosage: 200 MG, BID
     Route: 048
     Dates: start: 20120216

REACTIONS (30)
  - DYSPHONIA [None]
  - CONSTIPATION [None]
  - HYPERKERATOSIS [None]
  - OROPHARYNGEAL BLISTERING [None]
  - CHEST DISCOMFORT [None]
  - RASH [None]
  - PAIN IN EXTREMITY [None]
  - GAIT DISTURBANCE [None]
  - PAIN OF SKIN [None]
  - PRURITUS [None]
  - BLISTER [None]
  - DYSGEUSIA [None]
  - DECREASED APPETITE [None]
  - VOMITING [None]
  - RASH GENERALISED [None]
  - FATIGUE [None]
  - DIARRHOEA [None]
  - BLOOD PRESSURE INCREASED [None]
  - FUNGAL INFECTION [None]
  - RASH PAPULAR [None]
  - VULVOVAGINAL PAIN [None]
  - PALMAR-PLANTAR ERYTHRODYSAESTHESIA SYNDROME [None]
  - ERYTHEMA [None]
  - SKIN EXFOLIATION [None]
  - WEIGHT DECREASED [None]
  - NAUSEA [None]
  - ABDOMINAL PAIN UPPER [None]
  - ARTHRALGIA [None]
  - STOMATITIS [None]
  - HEADACHE [None]
